FAERS Safety Report 20381082 (Version 1)
Quarter: 2022Q1

REPORT INFORMATION
  Report Type: Spontaneous
  Country: CN (occurrence: None)
  Receive Date: 20220127
  Receipt Date: 20220127
  Transmission Date: 20220423
  Serious: Yes (Other)
  Sender: FDA-Public Use
  Company Number: CN-ROCHE-3003446

PATIENT
  Age: 53 Year
  Sex: Female
  Weight: 53 kg

DRUGS (14)
  1. HERCEPTIN [Suspect]
     Active Substance: TRASTUZUMAB
     Indication: Invasive breast carcinoma
     Dosage: TCBHP
     Route: 065
     Dates: start: 20200819
  2. HERCEPTIN [Suspect]
     Active Substance: TRASTUZUMAB
     Dosage: TCBHP
     Route: 065
     Dates: start: 20200909
  3. HERCEPTIN [Suspect]
     Active Substance: TRASTUZUMAB
     Dosage: THP, 03-OCT-2020, 25-OCT-2020, 15 NOV 2020, 7 DEC 2020
     Route: 065
  4. HERCEPTIN [Suspect]
     Active Substance: TRASTUZUMAB
     Dosage: HP
     Route: 065
     Dates: start: 2021
  5. PERJETA [Suspect]
     Active Substance: PERTUZUMAB
     Indication: Invasive breast carcinoma
     Dosage: TCBHP
     Route: 042
     Dates: start: 20200819
  6. PERJETA [Suspect]
     Active Substance: PERTUZUMAB
     Dosage: TCBHP
     Route: 042
     Dates: start: 20200909
  7. PERJETA [Suspect]
     Active Substance: PERTUZUMAB
     Dosage: THP, 03-OCT-2020, 25-OCT-2020, 15 NOV 2020, 7 DEC 2020
     Route: 042
  8. PERJETA [Suspect]
     Active Substance: PERTUZUMAB
     Dosage: HP
     Route: 042
     Dates: start: 2021
  9. DOCETAXEL [Concomitant]
     Active Substance: DOCETAXEL
     Indication: Invasive breast carcinoma
     Dosage: TCBHP
     Route: 065
     Dates: start: 20200819
  10. DOCETAXEL [Concomitant]
     Active Substance: DOCETAXEL
     Dosage: TCBHP
     Route: 065
     Dates: start: 20200909
  11. DOCETAXEL [Concomitant]
     Active Substance: DOCETAXEL
     Dosage: THP, 03-OCT-2020, 25-OCT-2020, 15 NOV 2020, 7 DEC 2020
     Route: 065
  12. CARBOPLATIN [Concomitant]
     Active Substance: CARBOPLATIN
     Indication: Invasive breast carcinoma
     Dosage: TCBHP
     Route: 065
     Dates: start: 20200819
  13. CARBOPLATIN [Concomitant]
     Active Substance: CARBOPLATIN
     Dosage: TCBHP
     Route: 065
     Dates: start: 20200909
  14. MECAPEGFILGRASTIM [Concomitant]
     Active Substance: MECAPEGFILGRASTIM
     Indication: White blood cell count increased
     Route: 065

REACTIONS (1)
  - Myelosuppression [Recovering/Resolving]
